FAERS Safety Report 11415214 (Version 1)
Quarter: 2015Q3

REPORT INFORMATION
  Report Type: Spontaneous
  Country: FR (occurrence: FR)
  Receive Date: 20150825
  Receipt Date: 20150825
  Transmission Date: 20151125
  Serious: Yes (Life-Threatening, Hospitalization)
  Sender: FDA-Public Use
  Company Number: FR-SA-2015SA127588

PATIENT
  Age: 83 Year
  Sex: Male

DRUGS (2)
  1. RIFADINE [Suspect]
     Active Substance: RIFAMPIN
     Indication: TOE AMPUTATION
     Route: 048
     Dates: start: 20150724, end: 20150729
  2. OFLOCET [Suspect]
     Active Substance: OFLOXACIN
     Indication: TOE AMPUTATION
     Dosage: FORM: FILM COATED DIVISIBLE TABLET
     Route: 048
     Dates: start: 20150724, end: 20150729

REACTIONS (4)
  - Hepatic failure [Recovering/Resolving]
  - Cell death [Recovering/Resolving]
  - Hepatitis acute [Recovering/Resolving]
  - Cholestasis [Recovering/Resolving]

NARRATIVE: CASE EVENT DATE: 20150727
